FAERS Safety Report 15062406 (Version 1)
Quarter: 2018Q2

REPORT INFORMATION
  Report Type: Spontaneous
  Country: US (occurrence: US)
  Receive Date: 20180625
  Receipt Date: 20180625
  Transmission Date: 20180711
  Serious: No
  Sender: FDA-Public Use
  Company Number: US-AMGEN-USASP2011023149

PATIENT
  Age: 53 Year
  Sex: Female

DRUGS (14)
  1. TRAMADOL. [Concomitant]
     Active Substance: TRAMADOL
  2. VITAMIN D                          /00107901/ [Concomitant]
     Active Substance: ERGOCALCIFEROL
  3. PHENERGAN [Concomitant]
     Active Substance: PROMETHAZINE HYDROCHLORIDE
  4. SENSIPAR [Suspect]
     Active Substance: CINACALCET HYDROCHLORIDE
     Dosage: 30 MG, QD
  5. FOSRENOL [Concomitant]
     Active Substance: LANTHANUM CARBONATE
  6. CLONIDINE. [Concomitant]
     Active Substance: CLONIDINE
  7. LEVEMIR [Concomitant]
     Active Substance: INSULIN DETEMIR
  8. TEKTURNA [Concomitant]
     Active Substance: ALISKIREN HEMIFUMARATE
  9. SENSIPAR [Suspect]
     Active Substance: CINACALCET HYDROCHLORIDE
     Indication: HYPERPARATHYROIDISM SECONDARY
     Dosage: UNK UNK, QD
     Dates: start: 200906, end: 200909
  10. LORATADINE. [Concomitant]
     Active Substance: LORATADINE
  11. XALATAN [Concomitant]
     Active Substance: LATANOPROST
  12. LIPITOR [Concomitant]
     Active Substance: ATORVASTATIN CALCIUM
  13. GABAPENTIN. [Concomitant]
     Active Substance: GABAPENTIN
  14. ZANTAC [Concomitant]
     Active Substance: RANITIDINE HYDROCHLORIDE

REACTIONS (4)
  - Nausea [Not Recovered/Not Resolved]
  - Fall [Not Recovered/Not Resolved]
  - Vomiting [Not Recovered/Not Resolved]
  - Dizziness [Not Recovered/Not Resolved]

NARRATIVE: CASE EVENT DATE: 201104
